FAERS Safety Report 8285543 (Version 6)
Quarter: 2016Q1

REPORT INFORMATION
  Report Type: Report from Study
  Country: GB (occurrence: GB)
  Receive Date: 20111213
  Receipt Date: 20160115
  Transmission Date: 20160526
  Serious: Yes (Other)
  Sender: FDA-Public Use
  Company Number: GB-ROCHE-1017786

PATIENT
  Age: 53 Year
  Sex: Male
  Weight: 75 kg

DRUGS (9)
  1. PREDNISONE. [Suspect]
     Active Substance: PREDNISONE
     Indication: DIFFUSE LARGE B-CELL LYMPHOMA
     Dosage: DATE OF MOST RECENT DOSE (100 MG) PRIOR TO SAE : 22/NOV/2011.
     Route: 048
     Dates: start: 20111028
  2. FLUCONAZOLE. [Concomitant]
     Active Substance: FLUCONAZOLE
     Route: 065
     Dates: start: 20111216
  3. ENOXAPARIN [Concomitant]
     Active Substance: ENOXAPARIN
     Indication: PERIPHERAL SWELLING
     Route: 065
     Dates: start: 20111128, end: 20130429
  4. CYCLOPHOSPHAMIDE. [Suspect]
     Active Substance: CYCLOPHOSPHAMIDE
     Indication: DIFFUSE LARGE B-CELL LYMPHOMA
     Dosage: DATE OF MOST RECENT DOSE (1400 MG) PRIOR TO SAE : 18/NOV/2011.
     Route: 042
     Dates: start: 20111028
  5. RITUXIMAB [Suspect]
     Active Substance: RITUXIMAB
     Indication: DIFFUSE LARGE B-CELL LYMPHOMA
     Dosage: DATE OF MOST RECENT DOSE (VOLUME : 710 ML AND DOSE CONCENTRATION : 1 MG/ML) PRIOR TO SAE : 18/NOV/20
     Route: 042
     Dates: start: 20111027
  6. VINCRISTINE [Suspect]
     Active Substance: VINCRISTINE
     Indication: DIFFUSE LARGE B-CELL LYMPHOMA
     Dosage: DATE OF MOST RECENT DOSE (2 MG) PRIOR TO SAE : 18/NOV/2011.
     Route: 040
     Dates: start: 20111028
  7. DOXORUBICIN [Suspect]
     Active Substance: DOXORUBICIN
     Indication: DIFFUSE LARGE B-CELL LYMPHOMA
     Dosage: DATE OF MOST RECENT DOSE (94 MG) PRIOR TO SAE : 18/NOV/2011.
     Route: 042
     Dates: start: 20111028
  8. OMEPRAZOLE. [Concomitant]
     Active Substance: OMEPRAZOLE
     Indication: EPIGASTRIC DISCOMFORT
     Route: 065
     Dates: start: 20120120
  9. WARFARIN [Concomitant]
     Active Substance: WARFARIN
     Route: 065
     Dates: start: 20130426

REACTIONS (1)
  - Venous thrombosis [Recovered/Resolved with Sequelae]

NARRATIVE: CASE EVENT DATE: 20111130
